FAERS Safety Report 5851946-9 (Version None)
Quarter: 2008Q3

REPORT INFORMATION
  Report Type: 
  Country: None (occurrence: None)
  Receive Date: 20080820
  Receipt Date: 20080808
  Transmission Date: 20090109
  Serious: Yes (Disabling)
  Sender: FDA-Public Use
  Company Number: FR-PFIZER INC-2008043400

PATIENT
  Sex: Male

DRUGS (9)
  1. TRIFLUCAN [Suspect]
     Indication: CRYPTOCOCCOSIS
     Route: 048
  2. ISENTRESS [Suspect]
     Indication: ACQUIRED IMMUNODEFICIENCY SYNDROME
     Dosage: TEXT:2DF
     Route: 048
  3. PREZISTA [Suspect]
     Indication: ACQUIRED IMMUNODEFICIENCY SYNDROME
     Dosage: TEXT:4 DF
     Route: 048
  4. TRUVADA [Suspect]
     Indication: HEPATITIS B
     Dosage: TEXT:1DF
     Route: 048
  5. TMC-125 [Suspect]
     Indication: ACQUIRED IMMUNODEFICIENCY SYNDROME
     Dosage: TEXT:4DF
     Route: 048
  6. NORVIR [Suspect]
     Route: 048
  7. CALCIUM FOLINATE [Concomitant]
     Route: 048
  8. LIPANOR [Concomitant]
     Indication: HYPERCHOLESTEROLAEMIA
     Route: 048
  9. MALOCIDE [Concomitant]
     Route: 048

REACTIONS (1)
  - MYALGIA [None]
